FAERS Safety Report 19423134 (Version 4)
Quarter: 2022Q2

REPORT INFORMATION
  Report Type: Report from Study
  Country: DE (occurrence: DE)
  Receive Date: 20210616
  Receipt Date: 20220403
  Transmission Date: 20220721
  Serious: Yes (Other)
  Sender: FDA-Public Use
  Company Number: PHHY2019DE195831

PATIENT
  Sex: Female
  Weight: 69 kg

DRUGS (9)
  1. KISQALI [Suspect]
     Active Substance: RIBOCICLIB
     Indication: Breast cancer
     Dosage: 600 MG ADMINISTRATION SCHEME 21 DAYS INTAKE, 7 DAYS PAUSE
     Route: 048
     Dates: start: 20190723, end: 20190812
  2. KISQALI [Suspect]
     Active Substance: RIBOCICLIB
     Dosage: 400 MG ADMINISTRATION SCHEME 21 DAYS INTAKE, 7 DAYS PAUSE
     Route: 048
     Dates: start: 20190827, end: 20190916
  3. KISQALI [Suspect]
     Active Substance: RIBOCICLIB
     Dosage: 400 MG ADMINISTRATION SCHEME 21 DAYS INTAKE, 7 DAYS PAUSE
     Route: 048
     Dates: start: 20190924, end: 20191220
  4. KISQALI [Suspect]
     Active Substance: RIBOCICLIB
     Dosage: 200 MG (SCHEME 21 DAYS INTAKE, 7 DAYS PAUSE)
     Route: 048
     Dates: start: 20200121
  5. KISQALI [Suspect]
     Active Substance: RIBOCICLIB
     Dosage: 600 MG ADMINISTRATION SCHEME 21 DAYS INTAKE, 7 DAYS PAUSE
     Route: 048
     Dates: start: 20201201, end: 20211115
  6. KISQALI [Suspect]
     Active Substance: RIBOCICLIB
     Dosage: 600 MG ADMINISTRATION SCHEME 21 DAYS INTAKE, 7 DAYS PAUSE
     Route: 048
     Dates: start: 20210316
  7. FULVESTRANT [Suspect]
     Active Substance: FULVESTRANT
     Indication: Breast cancer
     Dosage: 250 MG, QMO
     Route: 030
     Dates: start: 20190722, end: 20211025
  8. FULVESTRANT [Suspect]
     Active Substance: FULVESTRANT
     Dosage: UNK
     Route: 065
  9. LETROZOLE [Suspect]
     Active Substance: LETROZOLE
     Indication: Breast cancer
     Dosage: 2.5 MG, QD (FROM 01 DEC 2020)
     Route: 048

REACTIONS (23)
  - Epistaxis [Recovered/Resolved]
  - Gingival pain [Recovered/Resolved]
  - Memory impairment [Not Recovered/Not Resolved]
  - Alopecia [Recovered/Resolved]
  - Dry skin [Not Recovered/Not Resolved]
  - Bone pain [Recovered/Resolved]
  - Nail disorder [Recovered/Resolved]
  - Swelling [Not Recovered/Not Resolved]
  - Bone pain [Not Recovered/Not Resolved]
  - Cardiovascular disorder [Recovered/Resolved]
  - Gingival swelling [Not Recovered/Not Resolved]
  - Hypertension [Unknown]
  - Palmar-plantar erythrodysaesthesia syndrome [Not Recovered/Not Resolved]
  - Musculoskeletal chest pain [Recovered/Resolved]
  - Headache [Recovered/Resolved]
  - Nausea [Recovered/Resolved]
  - Dyspnoea [Not Recovered/Not Resolved]
  - Fatigue [Not Recovered/Not Resolved]
  - Dizziness [Recovered/Resolved]
  - Asthenia [Not Recovered/Not Resolved]
  - Arthralgia [Not Recovered/Not Resolved]
  - Ear pain [Not Recovered/Not Resolved]
  - Mucosal inflammation [Not Recovered/Not Resolved]

NARRATIVE: CASE EVENT DATE: 20190804
